FAERS Safety Report 9967449 (Version 2)
Quarter: 2014Q1

REPORT INFORMATION
  Report Type: Report from Study
  Country: US (occurrence: US)
  Receive Date: 20140305
  Receipt Date: 20140305
  Transmission Date: 20141002
  Serious: No
  Sender: FDA-Public Use
  Company Number: US-ABBVIE-13P-163-1127235-00

PATIENT
  Age: 57 Year
  Sex: Female

DRUGS (8)
  1. HUMIRA [Suspect]
     Indication: COLITIS ULCERATIVE
     Route: 058
     Dates: start: 20130709, end: 20130709
  2. HUMIRA [Suspect]
     Route: 058
     Dates: start: 20130723, end: 20130723
  3. HUMIRA [Suspect]
     Route: 058
     Dates: start: 20130806, end: 20130806
  4. ZOLOFT [Concomitant]
     Indication: DEPRESSION
  5. ZOLOFT [Concomitant]
     Indication: ANXIETY
  6. ELAVIL [Concomitant]
     Indication: DEPRESSION
  7. ELAVIL [Concomitant]
     Indication: ANXIETY
  8. APRISO [Concomitant]
     Indication: COLITIS ULCERATIVE

REACTIONS (5)
  - Urticaria [Recovering/Resolving]
  - Pruritus [Recovering/Resolving]
  - Headache [Recovering/Resolving]
  - Musculoskeletal discomfort [Not Recovered/Not Resolved]
  - Drug ineffective [Unknown]
